FAERS Safety Report 6576334-1 (Version None)
Quarter: 2010Q1

REPORT INFORMATION
  Report Type: 
  Country: None (occurrence: None)
  Receive Date: 20100210
  Receipt Date: 20100122
  Transmission Date: 20100710
  Serious: No
  Sender: FDA-Public Use
  Company Number: US-JNJFOC-20100110968

PATIENT
  Sex: Female
  Weight: 47.63 kg

DRUGS (11)
  1. DURAGESIC-100 [Suspect]
     Indication: ARTHRITIS
     Route: 062
  2. DURAGESIC-100 [Suspect]
     Dosage: NDC#: 50458-091-05
     Route: 062
  3. TRIMETHOPRIM [Concomitant]
     Indication: CYSTITIS
     Route: 048
  4. CHLORTHALIDONE [Concomitant]
     Indication: BLOOD PRESSURE
     Route: 048
  5. LISINOPRIL [Concomitant]
     Indication: BLOOD PRESSURE
     Route: 048
  6. NORVASC [Concomitant]
     Indication: BLOOD PRESSURE
     Route: 048
  7. CELEBREX [Concomitant]
     Indication: PAIN
     Route: 048
  8. ALLEGRA [Concomitant]
     Indication: SEASONAL ALLERGY
     Route: 048
  9. CALCITONIN SALMON [Concomitant]
     Indication: BONE DISORDER
     Route: 045
  10. FLUTICASONE PROPIONATE [Concomitant]
     Indication: SEASONAL ALLERGY
     Route: 045
  11. AMBIEN [Concomitant]
     Indication: INSOMNIA
     Route: 048

REACTIONS (1)
  - DRUG ADMINISTERED AT INAPPROPRIATE SITE [None]
